FAERS Safety Report 13982434 (Version 3)
Quarter: 2018Q1

REPORT INFORMATION
  Report Type: Spontaneous
  Country: US (occurrence: US)
  Receive Date: 20170918
  Receipt Date: 20180201
  Transmission Date: 20180508
  Serious: Yes (Hospitalization, Other)
  Sender: FDA-Public Use
  Company Number: US-BIOGEN-2006BI007120

PATIENT
  Age: 31 Year
  Sex: Female

DRUGS (3)
  1. AVONEX [Suspect]
     Active Substance: INTERFERON BETA-1A
     Route: 030
     Dates: start: 200304, end: 200304
  2. AVONEX [Suspect]
     Active Substance: INTERFERON BETA-1A
     Indication: MULTIPLE SCLEROSIS
     Route: 030
     Dates: start: 20060509, end: 20060509
  3. AVONEX [Suspect]
     Active Substance: INTERFERON BETA-1A
     Route: 065
     Dates: end: 20060510

REACTIONS (9)
  - Memory impairment [Unknown]
  - Optic neuritis [Recovered/Resolved]
  - Limb discomfort [Not Recovered/Not Resolved]
  - Gait inability [Unknown]
  - Hypersensitivity [Unknown]
  - Influenza like illness [Recovered/Resolved]
  - Malaise [Unknown]
  - Diabetes mellitus [Unknown]
  - Hypoaesthesia [Unknown]

NARRATIVE: CASE EVENT DATE: 200304
